FAERS Safety Report 11396874 (Version 2)
Quarter: 2016Q4

REPORT INFORMATION
  Report Type: Spontaneous
  Country: BR (occurrence: BR)
  Receive Date: 20150819
  Receipt Date: 20161003
  Transmission Date: 20170206
  Serious: Yes (Hospitalization)
  Sender: FDA-Public Use
  Company Number: BR-DSJP-DSE-2015-125353

PATIENT

DRUGS (3)
  1. BENICAR ANLO 40/10 [Suspect]
     Active Substance: AMLODIPINE BESYLATE\OLMESARTAN MEDOXOMIL
     Indication: BLOOD PRESSURE MEASUREMENT
     Dosage: 40/10 MG
     Route: 048
  2. EFFIENT [Suspect]
     Active Substance: PRASUGREL HYDROCHLORIDE
     Indication: ARTERIOSCLEROSIS
     Dosage: 10 MG, QD
     Route: 048
     Dates: start: 201501, end: 20150809
  3. EFFIENT [Suspect]
     Active Substance: PRASUGREL HYDROCHLORIDE
     Indication: ARTERIOSCLEROSIS
     Dosage: 5 MG, UNK
     Route: 048

REACTIONS (7)
  - Angioplasty [Recovered/Resolved]
  - Arteriosclerosis [Not Recovered/Not Resolved]
  - Haematoma [Not Recovered/Not Resolved]
  - Hypertension [Recovered/Resolved]
  - Nodule [Recovered/Resolved]
  - Off label use [Not Recovered/Not Resolved]
  - Drug administration error [Recovered/Resolved]

NARRATIVE: CASE EVENT DATE: 2014
